FAERS Safety Report 4404550-3 (Version None)
Quarter: 2004Q3

REPORT INFORMATION
  Report Type: 
  Country: None (occurrence: None)
  Receive Date: 20040722
  Receipt Date: 20040712
  Transmission Date: 20050211
  Serious: Yes (Hospitalization)
  Sender: FDA-Public Use
  Company Number: 200412686FR

PATIENT
  Age: 33 Year
  Sex: Male

DRUGS (2)
  1. KETEK [Suspect]
     Indication: BRONCHITIS
     Dates: start: 20040629, end: 20040705
  2. SOLUPRED [Concomitant]
     Dates: start: 20040629

REACTIONS (10)
  - ABDOMINAL PAIN [None]
  - APHTHOUS STOMATITIS [None]
  - CYTOMEGALOVIRUS ANTIBODY POSITIVE [None]
  - HAEMATURIA [None]
  - HEPATIC PAIN [None]
  - PURPURA [None]
  - REFUSAL OF TREATMENT BY PATIENT [None]
  - THROMBOCYTOPENIA [None]
  - TOXOPLASMOSIS [None]
  - VIRAL INFECTION [None]
